FAERS Safety Report 16181541 (Version 1)
Quarter: 2019Q2

REPORT INFORMATION
  Report Type: Spontaneous
  Country: FR (occurrence: FR)
  Receive Date: 20190410
  Receipt Date: 20190410
  Transmission Date: 20190711
  Serious: Yes (Hospitalization)
  Sender: FDA-Public Use
  Company Number: FR-MYLANLABS-2019M1032764

PATIENT
  Age: 52 Year
  Sex: Male
  Weight: 67 kg

DRUGS (3)
  1. RILUZOLE BIOGARAN [Suspect]
     Active Substance: RILUZOLE
     Indication: UPPER MOTOR NEURONE LESION
     Dosage: 1 DOSAGE FORM, QD
     Route: 048
     Dates: start: 201705, end: 201801
  2. SERTRALINA MYLAN 50 MG COMPRIMIDOS RECUBIERTOS CON PEL?CULA EFG [Suspect]
     Active Substance: SERTRALINE HYDROCHLORIDE
     Indication: DEPRESSION
     Dosage: 1 DOSAGE FORM, QD
     Route: 048
     Dates: start: 201712, end: 201801
  3. BACLOFENE [Suspect]
     Active Substance: BACLOFEN
     Indication: UPPER MOTOR NEURONE LESION
     Dosage: 2 DOSAGE FORM, QD
     Route: 048
     Dates: start: 201705, end: 201801

REACTIONS (3)
  - Ejection fraction decreased [Recovered/Resolved]
  - Bundle branch block left [Recovered/Resolved]
  - Congestive cardiomyopathy [Recovered/Resolved]

NARRATIVE: CASE EVENT DATE: 20171214
